FAERS Safety Report 5468905-0 (Version None)
Quarter: 2007Q3

REPORT INFORMATION
  Report Type: 
  Country: None (occurrence: None)
  Receive Date: 20070926
  Receipt Date: 20070921
  Transmission Date: 20080115
  Serious: Yes (Death, Life-Threatening, Hospitalization, Disabling)
  Sender: FDA-Public Use
  Company Number: PL-SHR-PL-2007-035686

PATIENT
  Age: 63 Year

DRUGS (5)
  1. FLUDARABINE PHOSPHATE [Suspect]
     Dosage: UNK, CYCLE 5
     Dates: start: 20070622
  2. FLUDARABINE PHOSPHATE [Suspect]
     Dosage: UNK, CYCLE 6
     Dates: start: 20070720
  3. CYCLOPHOSPHAMIDE [Suspect]
     Indication: CHRONIC LYMPHOCYTIC LEUKAEMIA
     Dosage: UNK, CYCLE 5
     Dates: start: 20070622
  4. CYCLOPHOSPHAMIDE [Suspect]
     Dosage: UNK, CYCLE 6
     Dates: start: 20070720
  5. CAMPATH [Suspect]
     Indication: CHRONIC LYMPHOCYTIC LEUKAEMIA

REACTIONS (8)
  - CARDIOVASCULAR INSUFFICIENCY [None]
  - CHRONIC LYMPHOCYTIC LEUKAEMIA [None]
  - LUNG INFECTION [None]
  - LYMPHADENOPATHY [None]
  - PANCYTOPENIA [None]
  - PYREXIA [None]
  - RESPIRATORY FAILURE [None]
  - TUBERCULOSIS TEST POSITIVE [None]
